FAERS Safety Report 11882433 (Version 1)
Quarter: 2015Q4

REPORT INFORMATION
  Report Type: Spontaneous
  Country: US (occurrence: None)
  Receive Date: 20151230
  Receipt Date: 20151230
  Transmission Date: 20160305
  Serious: Yes (Disabling)
  Sender: FDA-Public Use
  Company Number: None

PATIENT
  Age: 56 Year
  Sex: Female
  Weight: 45.81 kg

DRUGS (8)
  1. FLUNASE [Concomitant]
     Active Substance: FLUTICASONE PROPIONATE
  2. ACTONEL [Suspect]
     Active Substance: RISEDRONATE SODIUM
     Indication: OSTEOPOROSIS
     Route: 048
     Dates: start: 20130328, end: 20131103
  3. FLAQUILASE [Concomitant]
  4. OMEPRAZOLE. [Concomitant]
     Active Substance: OMEPRAZOLE
  5. KEFLEX [Concomitant]
     Active Substance: CEPHALEXIN
  6. SUCRALFATE. [Concomitant]
     Active Substance: SUCRALFATE
  7. EFFEXOR [Concomitant]
     Active Substance: VENLAFAXINE HYDROCHLORIDE
  8. MAGNESIUM CITRATE. [Concomitant]
     Active Substance: MAGNESIUM CITRATE

REACTIONS (2)
  - Bone loss [None]
  - Tinnitus [None]

NARRATIVE: CASE EVENT DATE: 201312
